FAERS Safety Report 4772220-8 (Version None)
Quarter: 2005Q3

REPORT INFORMATION
  Report Type: 
  Country: None (occurrence: None)
  Receive Date: 20050919
  Receipt Date: 20050209
  Transmission Date: 20060218
  Serious: No
  Sender: FDA-Public Use
  Company Number: US-BRISTOL-MYERS SQUIBB COMPANY-12856431

PATIENT
  Age: 77 Year
  Sex: Female
  Weight: 79 kg

DRUGS (10)
  1. DEFINITY [Suspect]
     Indication: ECHOCARDIOGRAM
     Route: 040
     Dates: start: 20050209, end: 20050209
  2. COUMADIN [Concomitant]
  3. AMIODARONE HCL [Concomitant]
  4. ZOCOR [Concomitant]
  5. COREG [Concomitant]
  6. LASIX [Concomitant]
  7. ALDACTONE [Concomitant]
  8. LIPITOR [Concomitant]
  9. SYNTHROID [Concomitant]
  10. LEVOXYL [Concomitant]

REACTIONS (4)
  - FAECAL INCONTINENCE [None]
  - HYPOTENSION [None]
  - SYNCOPE VASOVAGAL [None]
  - URINARY INCONTINENCE [None]
